FAERS Safety Report 9086922 (Version 1)
Quarter: 2013Q1

REPORT INFORMATION
  Report Type: Report from Study
  Country: US (occurrence: US)
  Receive Date: 20130130
  Receipt Date: 20130130
  Transmission Date: 20140127
  Serious: No
  Sender: FDA-Public Use
  Company Number: US-ABBOTT-12P-163-0978827-00

PATIENT
  Age: 55 Year
  Sex: Male

DRUGS (3)
  1. HUMIRA [Suspect]
     Indication: CROHN^S DISEASE
  2. ATENOLOL [Concomitant]
     Indication: HYPERTENSION
  3. SULFASALAZINE [Concomitant]
     Indication: COLITIS ULCERATIVE

REACTIONS (7)
  - Device malfunction [Not Recovered/Not Resolved]
  - Injection site reaction [Not Recovered/Not Resolved]
  - Injection site pain [Not Recovered/Not Resolved]
  - Incorrect dose administered [Not Recovered/Not Resolved]
  - Muscle spasms [Unknown]
  - Pain [Unknown]
  - Diarrhoea [Unknown]
